FAERS Safety Report 4704363-9 (Version None)
Quarter: 2005Q2

REPORT INFORMATION
  Report Type: 
  Country: None (occurrence: None)
  Receive Date: 20050630
  Receipt Date: 20050603
  Transmission Date: 20051028
  Serious: Yes (Death, Life-Threatening, Hospitalization, Other)
  Sender: FDA-Public Use
  Company Number: US-BRISTOL-MYERS SQUIBB COMPANY-12994869

PATIENT
  Age: 68 Year
  Sex: Male

DRUGS (16)
  1. CETUXIMAB [Suspect]
     Indication: NON-SMALL CELL LUNG CANCER
     Route: 042
     Dates: start: 20050531, end: 20050531
  2. CARBOPLATIN [Suspect]
     Indication: NON-SMALL CELL LUNG CANCER
     Route: 042
     Dates: start: 20050531, end: 20050531
  3. TAXOL [Suspect]
     Indication: NON-SMALL CELL LUNG CANCER
     Route: 042
     Dates: start: 20050531, end: 20050531
  4. ACIPHEX [Concomitant]
  5. ALPRAZOLAM [Concomitant]
     Indication: ANXIETY
  6. ASPIRIN [Concomitant]
  7. FORADIL [Concomitant]
     Route: 055
  8. TRIAMTERENE AND HYDROCHLOROTHIAZIDE [Concomitant]
     Dosage: HCTZ 25/TRIAMTERENE 37.5 MG
  9. HYDROCODONE + ACETAMINOPHEN [Concomitant]
     Indication: PAIN
     Dosage: 5/500.
  10. PLETAL [Concomitant]
  11. SIMVASTATIN TAB [Concomitant]
  12. SPIRIVA [Concomitant]
     Route: 055
  13. TIMOPTIC [Concomitant]
     Route: 047
  14. VERAPAMIL HCL [Concomitant]
  15. XALATAN [Concomitant]
     Route: 047
  16. ESZOPICLONE [Concomitant]

REACTIONS (4)
  - CARDIAC FAILURE CONGESTIVE [None]
  - CHRONIC OBSTRUCTIVE AIRWAYS DISEASE EXACERBATED [None]
  - HEPATIC FAILURE [None]
  - PANCYTOPENIA [None]
